FAERS Safety Report 25511939 (Version 1)
Quarter: 2025Q3

REPORT INFORMATION
  Report Type: Spontaneous
  Country: EU (occurrence: EU)
  Receive Date: 20250703
  Receipt Date: 20250703
  Transmission Date: 20251020
  Serious: Yes (Death, Other)
  Sender: AMGEN
  Company Number: EU-AMGEN-ITASP2025124297

PATIENT
  Sex: Female
  Weight: 45 kg

DRUGS (6)
  1. PROLIA [Suspect]
     Active Substance: DENOSUMAB
     Indication: Product used for unknown indication
     Dosage: 60 MILLIGRAM, Q6MO
     Route: 065
     Dates: start: 2020
  2. INSULIN NOS [Concomitant]
     Active Substance: INSULIN NOS
  3. PIOGLITAZONE [Concomitant]
     Active Substance: PIOGLITAZONE
  4. OMEGA-3 FATTY ACIDS [Concomitant]
     Active Substance: OMEGA-3 FATTY ACIDS
  5. METFORMIN [Concomitant]
     Active Substance: METFORMIN HYDROCHLORIDE
  6. LETROZOLE [Concomitant]
     Active Substance: LETROZOLE

REACTIONS (4)
  - Pneumonia [Fatal]
  - Breast cancer metastatic [Unknown]
  - Type 2 diabetes mellitus [Unknown]
  - Lipodystrophy acquired [Unknown]
